FAERS Safety Report 9013499 (Version 1)
Quarter: 2013Q1

REPORT INFORMATION
  Report Type: Spontaneous
  Country: US (occurrence: None)
  Receive Date: 20130107
  Receipt Date: 20130107
  Transmission Date: 20140127
  Serious: Yes (Hospitalization)
  Sender: FDA-Public Use
  Company Number: None

PATIENT
  Sex: Male
  Weight: 78.65 kg

DRUGS (1)
  1. ALFA 2 INTERFERON 2B (INTRON-A) [Suspect]
     Dates: end: 20121219

REACTIONS (11)
  - Pyrexia [None]
  - Tachycardia [None]
  - Pulmonary embolism [None]
  - Fluid overload [None]
  - Pulmonary oedema [None]
  - Pneumonia [None]
  - Cardiac failure congestive [None]
  - Platelet disorder [None]
  - Neutrophil count abnormal [None]
  - Haemoglobin abnormal [None]
  - White blood cell disorder [None]
